FAERS Safety Report 9402490 (Version 5)
Quarter: 2013Q3

REPORT INFORMATION
  Report Type: Spontaneous
  Country: JP (occurrence: JP)
  Receive Date: 20130716
  Receipt Date: 20130808
  Transmission Date: 20140515
  Serious: Yes (Hospitalization, Other)
  Sender: FDA-Public Use
  Company Number: JP-PFIZER INC-2013205494

PATIENT
  Age: 86 Year
  Sex: Male
  Weight: 53 kg

DRUGS (2)
  1. GABAPEN [Suspect]
     Indication: POST HERPETIC NEURALGIA
     Dosage: 300 MG/DAY
     Route: 048
     Dates: start: 2013, end: 20130712
  2. TRYPTANOL [Concomitant]
     Indication: POST HERPETIC NEURALGIA
     Dosage: UNK

REACTIONS (2)
  - Oedema peripheral [Recovered/Resolved]
  - Gait disturbance [Recovering/Resolving]
